FAERS Safety Report 8035577-0 (Version None)
Quarter: 2012Q1

REPORT INFORMATION
  Report Type: 
  Country: None (occurrence: None)
  Receive Date: 20120110
  Receipt Date: 20120110
  Transmission Date: 20120608
  Serious: Yes (Other)
  Sender: FDA-Public Use
  Company Number: None

PATIENT
  Sex: Male
  Weight: 106.1417 kg

DRUGS (2)
  1. BROVANA [Suspect]
     Indication: ASTHMA
     Dosage: 15 MCG/2 ML Q 12 HR NEBULIZER
     Dates: start: 20111210, end: 20111214
  2. BROVANA [Suspect]
     Indication: DYSPNOEA
     Dosage: 15 MCG/2 ML Q 12 HR NEBULIZER
     Dates: start: 20111210, end: 20111214

REACTIONS (2)
  - NAUSEA [None]
  - FEELING ABNORMAL [None]
